FAERS Safety Report 19164202 (Version 2)
Quarter: 2021Q2

REPORT INFORMATION
  Report Type: Spontaneous
  Country: US (occurrence: US)
  Receive Date: 20210421
  Receipt Date: 20210504
  Transmission Date: 20210717
  Serious: No
  Sender: FDA-Public Use
  Company Number: US-TEVA-2021-US-1902476

PATIENT

DRUGS (1)
  1. NEFAZODONE TEVA [Suspect]
     Active Substance: NEFAZODONE
     Dosage: I HAVE BEEN TAKING IT FOR 26 YEARS
     Route: 065

REACTIONS (4)
  - Product supply issue [Unknown]
  - Eating disorder [Unknown]
  - Withdrawal syndrome [Unknown]
  - Sleep disorder [Unknown]
